FAERS Safety Report 6136314-7 (Version None)
Quarter: 2009Q1

REPORT INFORMATION
  Report Type: 
  Country: None (occurrence: None)
  Receive Date: 20090325
  Receipt Date: 20090317
  Transmission Date: 20090719
  Serious: Yes (Life-Threatening, Hospitalization, Other)
  Sender: FDA-Public Use
  Company Number: 2009SP005788

PATIENT
  Age: 57 Year
  Sex: Female
  Weight: 55 kg

DRUGS (5)
  1. TEMOZOLOMIDE [Suspect]
     Indication: DRUG USE FOR UNKNOWN INDICATION
     Dosage: 250 MG; ONCE; PO
     Route: 048
  2. SOM230 [Suspect]
     Indication: PROLACTINOMA
     Dosage: 300 MCG; BID; SC
     Route: 058
     Dates: start: 20090205, end: 20090219
  3. PREDNISOLONE [Suspect]
     Indication: DRUG USE FOR UNKNOWN INDICATION
     Dosage: 9 MG; ONCE; PO
     Route: 048
  4. LEVOXYL [Concomitant]
  5. CARBOPLATIN [Concomitant]

REACTIONS (8)
  - ADRENOCORTICAL INSUFFICIENCY ACUTE [None]
  - ARTHRITIS [None]
  - DEHYDRATION [None]
  - HYPOPHAGIA [None]
  - LOBAR PNEUMONIA [None]
  - OROPHARYNGEAL PAIN [None]
  - TREATMENT NONCOMPLIANCE [None]
  - WHITE BLOOD CELL COUNT DECREASED [None]
